FAERS Safety Report 8076134-X (Version None)
Quarter: 2012Q1

REPORT INFORMATION
  Report Type: 
  Country: None (occurrence: None)
  Receive Date: 20120127
  Receipt Date: 20110922
  Transmission Date: 20120608
  Serious: No
  Sender: FDA-Public Use
  Company Number: US-GLAXOSMITHKLINE-A0949039A

PATIENT
  Age: 49 Year
  Sex: Female

DRUGS (2)
  1. BUPROPION HYDROCHLORIDE [Suspect]
     Indication: DEPRESSION
     Route: 048
     Dates: start: 20110501
  2. WELLBUTRIN XL [Suspect]
     Indication: DEPRESSION
     Dosage: 300MGD PER DAY
     Route: 048
     Dates: start: 20110801

REACTIONS (3)
  - MEDICATION RESIDUE [None]
  - DRUG INEFFECTIVE [None]
  - PRODUCT QUALITY ISSUE [None]
